FAERS Safety Report 5372265-3 (Version None)
Quarter: 2007Q2

REPORT INFORMATION
  Report Type: 
  Country: None (occurrence: None)
  Receive Date: 20070620
  Receipt Date: 20070213
  Transmission Date: 20071010
  Serious: No
  Sender: FDA-Public Use
  Company Number: 2007RL000062

PATIENT
  Age: 55 Year
  Sex: Male
  Weight: 103.4201 kg

DRUGS (13)
  1. OMACOR [Suspect]
     Indication: DRUG USE FOR UNKNOWN INDICATION
     Dosage: 2 GM;BID;PO
     Route: 048
     Dates: start: 20070101, end: 20070212
  2. K-DUR 10 [Concomitant]
  3. SPIRONOLACTONE [Concomitant]
  4. ASPIRIN [Concomitant]
  5. DIGOXIN [Concomitant]
  6. HYDRALAZINE HCL [Concomitant]
  7. COREG [Concomitant]
  8. GLUCOVANCE [Concomitant]
  9. FUROSEMIDE [Concomitant]
  10. ISOSORBIDE DINITRATE [Concomitant]
  11. CADUET [Concomitant]
  12. DIOVAN [Concomitant]
  13. TRAZODONE HCL [Concomitant]

REACTIONS (3)
  - BACK PAIN [None]
  - INFLAMMATION [None]
  - PAIN IN EXTREMITY [None]
